FAERS Safety Report 5780496-3 (Version None)
Quarter: 2008Q2

REPORT INFORMATION
  Report Type: 
  Country: None (occurrence: None)
  Receive Date: 20080620
  Receipt Date: 20080611
  Transmission Date: 20081010
  Serious: Yes (Death, Life-Threatening, Other)
  Sender: FDA-Public Use
  Company Number: GB-JNJFOC-20080603076

PATIENT
  Sex: Female
  Weight: 41 kg

DRUGS (7)
  1. REMICADE [Suspect]
     Indication: RHEUMATOID ARTHRITIS
     Route: 042
  2. METHOTREXATE [Concomitant]
  3. CALCICHEW [Concomitant]
  4. CELEBREX [Concomitant]
  5. CO-PROXAMOL [Concomitant]
  6. LEVOTHYROXINE SODIUM [Concomitant]
  7. ZANTAC [Concomitant]

REACTIONS (1)
  - DEATH [None]
